FAERS Safety Report 9225384 (Version 14)
Quarter: 2014Q1

REPORT INFORMATION
  Report Type: Spontaneous
  Country: US (occurrence: US)
  Receive Date: 20130411
  Receipt Date: 20140320
  Transmission Date: 20141002
  Serious: Yes (Life-Threatening)
  Sender: FDA-Public Use
  Company Number: US-ROCHE-1209609

PATIENT
  Age: 63 Year
  Sex: Female
  Weight: 68 kg

DRUGS (57)
  1. XOLAIR [Suspect]
     Indication: ASTHMA
     Route: 058
     Dates: start: 20130219
  2. XOLAIR [Suspect]
     Route: 058
     Dates: start: 20130329, end: 20130329
  3. XOLAIR [Suspect]
     Route: 065
     Dates: start: 20130325
  4. ASTEPRO [Concomitant]
     Indication: ASTHMA
     Dosage: 2 SPRAY AM/PM
     Route: 055
     Dates: start: 2013
  5. FORMOTEROL FUMARATE [Concomitant]
     Route: 065
     Dates: start: 20120730
  6. ZYRTEC [Concomitant]
     Indication: HYPERSENSITIVITY
     Route: 065
     Dates: start: 20120730
  7. ZYRTEC [Concomitant]
     Dosage: QD
     Route: 048
  8. ATIVAN [Concomitant]
     Indication: POST-TRAUMATIC STRESS DISORDER
     Route: 048
     Dates: start: 20120730
  9. ATIVAN [Concomitant]
     Indication: ANXIETY
     Route: 048
  10. THEOPHYLLINE [Concomitant]
     Indication: ASTHMA
     Route: 065
     Dates: start: 20120730
  11. THEOPHYLLINE [Concomitant]
     Route: 048
  12. THEOPHYLLINE [Concomitant]
     Route: 048
  13. SINGULAIR [Concomitant]
     Indication: ASTHMA
     Route: 065
     Dates: start: 20120730
  14. SINGULAIR [Concomitant]
     Dosage: QHS
     Route: 048
  15. ACIPHEX [Concomitant]
     Indication: GASTROOESOPHAGEAL REFLUX DISEASE
     Route: 065
     Dates: start: 20120730
  16. ACIPHEX [Concomitant]
     Route: 048
  17. ZANTAC [Concomitant]
     Dosage: 50 MG/2 ML
     Route: 048
     Dates: start: 20120730
  18. SIMVASTATIN [Concomitant]
     Indication: CARDIOVASCULAR EVENT PROPHYLAXIS
     Route: 048
     Dates: start: 20120730
  19. SIMVASTATIN [Concomitant]
     Dosage: QHS
     Route: 048
  20. COLACE [Concomitant]
     Route: 065
     Dates: start: 20120730
  21. COLACE [Concomitant]
     Dosage: QHS
     Route: 065
  22. LYRICA [Concomitant]
     Route: 065
     Dates: start: 20120730
  23. TYLENOL PM [Concomitant]
     Route: 065
     Dates: start: 20120730
  24. FLUCONAZOLE [Concomitant]
     Route: 065
     Dates: start: 20120730
  25. PREDNISONE [Concomitant]
     Route: 065
     Dates: start: 20120730
  26. PREDNISONE [Concomitant]
     Route: 065
     Dates: start: 20130329
  27. PREDNISONE [Concomitant]
     Route: 065
  28. PREDNISONE [Concomitant]
     Route: 065
  29. CYCLOBENZAPRINE HYDROCHLORIDE [Concomitant]
     Indication: PAIN
     Route: 065
     Dates: start: 20120730
  30. CYCLOBENZAPRINE HYDROCHLORIDE [Concomitant]
     Route: 048
     Dates: start: 1997
  31. CULTURELLE [Concomitant]
     Route: 065
     Dates: start: 20120730
  32. CULTURELLE [Concomitant]
     Dosage: PRN
     Route: 048
  33. EPIPEN [Concomitant]
     Dosage: FORM STRENGTH: 0.3MG/0.3ML
     Route: 065
     Dates: start: 20120925
  34. PREDNISONE [Concomitant]
     Indication: HYPERSENSITIVITY
     Route: 065
     Dates: start: 20120925
  35. PREDNISONE [Concomitant]
     Route: 048
  36. PREDNISONE [Concomitant]
     Route: 048
  37. PREDNISONE [Concomitant]
     Route: 048
  38. PATADAY [Concomitant]
     Indication: HYPERSENSITIVITY
     Route: 065
     Dates: start: 20120925
  39. PATADAY [Concomitant]
     Dosage: PRN
     Route: 065
  40. VICODIN [Concomitant]
     Indication: PAIN
     Route: 065
     Dates: start: 20120730
  41. VICODIN [Concomitant]
     Dosage: 100 MG/500 MG PRN
     Route: 048
     Dates: start: 1997
  42. POTASSIUM CHLORIDE [Concomitant]
     Route: 065
     Dates: start: 20120730
  43. POTASSIUM CHLORIDE [Concomitant]
     Dosage: 10 MG/50ML
     Route: 048
  44. QVAR [Concomitant]
     Indication: ASTHMA
     Dosage: DOSE: 10 MG/4 PUFFS
     Route: 065
     Dates: start: 20130124
  45. QVAR [Concomitant]
     Dosage: DOSE: 4 PUFFS AM/PM
     Route: 050
     Dates: start: 201206
  46. DOXEPIN HCL [Concomitant]
     Indication: ANXIETY
     Route: 048
     Dates: start: 20120730
  47. DOXEPIN HCL [Concomitant]
     Indication: POST-TRAUMATIC STRESS DISORDER
  48. XOPENEX HFA [Concomitant]
     Indication: ASTHMA
     Dosage: 2 PUFFS,
     Route: 055
     Dates: start: 20120730
  49. ATROVENT HFA [Concomitant]
     Route: 065
     Dates: start: 20120730
  50. MIRALAX [Concomitant]
     Indication: CONSTIPATION
     Route: 065
     Dates: start: 20120730
  51. MIRALAX [Concomitant]
     Dosage: PRN
     Route: 048
  52. SPIRIVA [Concomitant]
     Indication: ASTHMA
     Dosage: 1 PUFF
     Route: 055
     Dates: start: 2013
  53. FORADIL [Concomitant]
     Indication: ASTHMA
     Dosage: 1 PUFF, AEROLIZER
     Route: 050
  54. FLONASE [Concomitant]
     Indication: ASTHMA
     Dosage: 2 SPRAYS EVERY MORNING AND NIGHT
     Route: 050
  55. DOXEPIN [Concomitant]
     Indication: POST-TRAUMATIC STRESS DISORDER
     Route: 048
  56. FLECTOR [Concomitant]
     Indication: PAIN
     Dosage: PRN
     Route: 065
  57. AUGMENTIN [Concomitant]
     Dosage: 10 DAYS
     Route: 065

REACTIONS (1)
  - Anaphylactic reaction [Recovered/Resolved]
